FAERS Safety Report 10956736 (Version 1)
Quarter: 2015Q1

REPORT INFORMATION
  Report Type: Spontaneous
  Country: US (occurrence: US)
  Receive Date: 20150326
  Receipt Date: 20150326
  Transmission Date: 20150721
  Serious: No
  Sender: FDA-Public Use
  Company Number: US-MYLANLABS-2014S1005743

PATIENT
  Sex: Female
  Weight: 102.06 kg

DRUGS (4)
  1. EMSAM [Suspect]
     Active Substance: SELEGILINE
     Dosage: 6 MG,QD
     Route: 062
     Dates: start: 20070421, end: 20070827
  2. EMSAM [Suspect]
     Active Substance: SELEGILINE
     Indication: DEPRESSION
  3. ANTIDEPRESSANTS [Concomitant]
     Active Substance: UNSPECIFIED INGREDIENT
     Dosage: UNK
  4. LAMICTAL [Concomitant]
     Active Substance: LAMOTRIGINE
     Dosage: UNK

REACTIONS (5)
  - Application site pain [Recovered/Resolved]
  - Application site pruritus [Recovered/Resolved]
  - Application site rash [Recovered/Resolved]
  - Application site erythema [Recovered/Resolved]
  - Application site discolouration [Recovered/Resolved]
